FAERS Safety Report 5074188-6 (Version None)
Quarter: 2006Q3

REPORT INFORMATION
  Report Type: 
  Country: None (occurrence: None)
  Receive Date: 20060714
  Receipt Date: 20060524
  Transmission Date: 20061208
  Serious: No
  Sender: FDA-Public Use
  Company Number: 2006SP002200

PATIENT
  Age: 49 Year
  Sex: Male
  Weight: 78.4723 kg

DRUGS (6)
  1. LUNESTA [Suspect]
     Indication: INITIAL INSOMNIA
     Dosage: SEE IMAGE
     Route: 048
     Dates: start: 20050101, end: 20060101
  2. LUNESTA [Suspect]
     Indication: INITIAL INSOMNIA
     Dosage: SEE IMAGE
     Route: 048
     Dates: start: 20060101, end: 20060524
  3. VICODIN [Concomitant]
  4. DURAGESIC-100 [Concomitant]
  5. ZOLOFT [Concomitant]
  6. XANAX [Concomitant]

REACTIONS (2)
  - DIZZINESS [None]
  - INITIAL INSOMNIA [None]
